FAERS Safety Report 10360674 (Version 3)
Quarter: 2014Q3

REPORT INFORMATION
  Report Type: Spontaneous
  Country: JP (occurrence: JP)
  Receive Date: 20140804
  Receipt Date: 20140826
  Transmission Date: 20150326
  Serious: Yes (Other)
  Sender: FDA-Public Use
  Company Number: JP-BRISTOL-MYERS SQUIBB COMPANY-21258959

PATIENT
  Age: 87 Year

DRUGS (1)
  1. ELIQUIS [Suspect]
     Active Substance: APIXABAN
     Dosage: TABLET
     Route: 048

REACTIONS (3)
  - Macular degeneration [Unknown]
  - Macular oedema [Unknown]
  - Ophthalmic vein thrombosis [Unknown]
